FAERS Safety Report 5774871-0 (Version None)
Quarter: 2008Q2

REPORT INFORMATION
  Report Type: 
  Country: None (occurrence: None)
  Receive Date: 20080617
  Receipt Date: 20080604
  Transmission Date: 20081010
  Serious: Yes (Other)
  Sender: FDA-Public Use
  Company Number: JP-ELI_LILLY_AND_COMPANY-JP200806001631

PATIENT
  Age: 52 Year
  Sex: Male

DRUGS (5)
  1. GEMZAR [Suspect]
     Indication: PANCREATIC CARCINOMA NON-RESECTABLE
     Dosage: UNK, OTHER
     Route: 042
     Dates: start: 20050401, end: 20050801
  2. GEMZAR [Suspect]
     Dosage: 1400 MG, OTHER
     Route: 042
     Dates: start: 20050801, end: 20060101
  3. GEMZAR [Suspect]
     Route: 042
     Dates: start: 20060101
  4. CISPLATIN [Concomitant]
     Indication: PANCREATIC CARCINOMA NON-RESECTABLE
     Dosage: 20MG, OTHER
     Route: 065
     Dates: start: 20050801, end: 20060201
  5. TS 1 [Concomitant]
     Indication: PANCREATIC CARCINOMA NON-RESECTABLE
     Route: 048
     Dates: start: 20060101

REACTIONS (3)
  - ANAPHYLACTIC SHOCK [None]
  - BONE MARROW FAILURE [None]
  - MALIGNANT NEOPLASM PROGRESSION [None]
